FAERS Safety Report 14257829 (Version 1)
Quarter: 2017Q4

REPORT INFORMATION
  Report Type: Spontaneous
  Country: ET (occurrence: ET)
  Receive Date: 20171207
  Receipt Date: 20171207
  Transmission Date: 20180321
  Serious: Yes (Other)
  Sender: FDA-Public Use
  Company Number: ET-STRIDES ARCOLAB LIMITED-2017SP014461

PATIENT
  Age: 29 Year
  Sex: Female

DRUGS (2)
  1. LAMIVUDINE W/STAVUDINE [Suspect]
     Active Substance: LAMIVUDINE\STAVUDINE
     Indication: HIV INFECTION CDC CATEGORY C
     Dosage: UNK
     Route: 065
  2. NEVIRAPINE. [Suspect]
     Active Substance: NEVIRAPINE
     Indication: HIV INFECTION CDC CATEGORY C
     Dosage: UNK, UNKNOWN
     Route: 065
     Dates: start: 2008

REACTIONS (3)
  - Virologic failure [Unknown]
  - Viral mutation identified [Unknown]
  - Drug resistance [Unknown]
